FAERS Safety Report 21099754 (Version 1)
Quarter: 2022Q3

REPORT INFORMATION
  Report Type: Spontaneous
  Country: US (occurrence: US)
  Receive Date: 20220719
  Receipt Date: 20220719
  Transmission Date: 20221026
  Serious: Yes (Other)
  Sender: FDA-Public Use
  Company Number: US-SA-SAC20220713000858

PATIENT
  Age: 58 Year
  Sex: Female

DRUGS (1)
  1. ZANTAC [Suspect]
     Active Substance: RANITIDINE HYDROCHLORIDE
     Indication: Dyspepsia
     Dosage: 25 MG, OCCASIONAL
     Dates: start: 201201, end: 201701

REACTIONS (7)
  - Colorectal cancer stage IV [Not Recovered/Not Resolved]
  - Disease progression [Unknown]
  - Gastrointestinal carcinoma [Not Recovered/Not Resolved]
  - Disease progression [Unknown]
  - Cervix carcinoma stage IV [Not Recovered/Not Resolved]
  - Disease progression [Unknown]
  - Ovarian cancer stage IV [Not Recovered/Not Resolved]

NARRATIVE: CASE EVENT DATE: 20170501
